FAERS Safety Report 4515321-1 (Version None)
Quarter: 2004Q4

REPORT INFORMATION
  Report Type: 
  Country: None (occurrence: None)
  Receive Date: 20041126
  Receipt Date: 20041105
  Transmission Date: 20050328
  Serious: Yes (Disabling)
  Sender: FDA-Public Use
  Company Number: 2004-0007555

PATIENT
  Age: 49 Year
  Sex: Male
  Weight: 63.05 kg

DRUGS (7)
  1. VIREAD [Suspect]
     Indication: HIV INFECTION
     Dosage: 300 MG, 1 IN 1 D, ORAL
     Route: 048
     Dates: start: 20020509, end: 20030911
  2. 3TC (LAMIVUDINE) [Concomitant]
  3. VIRAMUNE [Concomitant]
  4. KALETRA [Concomitant]
  5. ACYCLOVIR [Concomitant]
  6. DEPAKOTE [Concomitant]
  7. ZOLOFT [Concomitant]

REACTIONS (14)
  - ATAXIA [None]
  - BLOOD BICARBONATE DECREASED [None]
  - BLOOD CREATININE INCREASED [None]
  - BLOOD GLUCOSE INCREASED [None]
  - BLOOD URINE PRESENT [None]
  - DRY MOUTH [None]
  - GLUCOSE URINE PRESENT [None]
  - HYPOPHOSPHATAEMIA [None]
  - LABORATORY TEST ABNORMAL [None]
  - MYALGIA [None]
  - PARAESTHESIA [None]
  - PROTEIN URINE PRESENT [None]
  - URINARY CASTS [None]
  - URINE KETONE BODY [None]
